FAERS Safety Report 5027344-7 (Version None)
Quarter: 2006Q2

REPORT INFORMATION
  Report Type: 
  Country: None (occurrence: None)
  Receive Date: 20060612
  Receipt Date: 20060602
  Transmission Date: 20061013
  Serious: Yes (Other)
  Sender: FDA-Public Use
  Company Number: 2005105241

PATIENT
  Age: 22 Year
  Sex: Male
  Weight: 58.0604 kg

DRUGS (1)
  1. VISINE-A [Suspect]
     Indication: EYE PRURITUS
     Dosage: 2 DROPS ONCE, OPHTHALMIC
     Route: 047
     Dates: start: 20050722, end: 20050722

REACTIONS (7)
  - ASTHENOPIA [None]
  - CONJUNCTIVITIS ALLERGIC [None]
  - EYE PAIN [None]
  - HEAD DISCOMFORT [None]
  - PHOTOPHOBIA [None]
  - PHOTOSENSITIVITY REACTION [None]
  - PYREXIA [None]
